FAERS Safety Report 13105954 (Version 1)
Quarter: 2017Q1

REPORT INFORMATION
  Report Type: Spontaneous
  Country: AW (occurrence: AW)
  Receive Date: 20170111
  Receipt Date: 20170111
  Transmission Date: 20170428
  Serious: Yes (Other)
  Sender: FDA-Public Use
  Company Number: AW-BAYER-2017-004441

PATIENT
  Age: 40 Year
  Sex: Male

DRUGS (1)
  1. CIPROFLOXACIN MK 500 MG [Suspect]
     Active Substance: CIPROFLOXACIN
     Dosage: 500 MG, UNK

REACTIONS (3)
  - Abasia [Unknown]
  - Feeling abnormal [Not Recovered/Not Resolved]
  - Adverse event [Unknown]
